FAERS Safety Report 19293359 (Version 1)
Quarter: 2021Q2

REPORT INFORMATION
  Report Type: Spontaneous
  Country: UM (occurrence: UM)
  Receive Date: 20210523
  Receipt Date: 20210523
  Transmission Date: 20210717
  Serious: Yes (Other)
  Sender: FDA-Public Use
  Company Number: None

PATIENT
  Age: 55 Year
  Sex: Male
  Weight: 95.7 kg

DRUGS (18)
  1. VITAMIN D2 [Suspect]
     Active Substance: ERGOCALCIFEROL
  2. PROCHLORPERAZINE. [Suspect]
     Active Substance: PROCHLORPERAZINE
  3. INLYTA [Suspect]
     Active Substance: AXITINIB
     Indication: RENAL CANCER
     Route: 048
     Dates: start: 20200902
  4. SIMVASTATIN. [Suspect]
     Active Substance: SIMVASTATIN
  5. INLYTA [Suspect]
     Active Substance: AXITINIB
     Indication: RENAL CANCER
     Route: 048
     Dates: start: 20201017
  6. DEPAKOTE [Suspect]
     Active Substance: DIVALPROEX SODIUM
  7. LEVOTHYROXINE. [Suspect]
     Active Substance: LEVOTHYROXINE
  8. METOPROLOL SUCCINATE ER [Suspect]
     Active Substance: METOPROLOL SUCCINATE
  9. VALIUM [Suspect]
     Active Substance: DIAZEPAM
  10. PERCOCET [Suspect]
     Active Substance: ACETAMINOPHEN\OXYCODONE HYDROCHLORIDE
  11. MIRALAX [Suspect]
     Active Substance: POLYETHYLENE GLYCOL 3350
  12. LORAZEPAM. [Suspect]
     Active Substance: LORAZEPAM
  13. ONDANSETRON [Suspect]
     Active Substance: ONDANSETRON
  14. EFFEXOR XR [Suspect]
     Active Substance: VENLAFAXINE HYDROCHLORIDE
  15. DEPAKOTE ER [Suspect]
     Active Substance: DIVALPROEX SODIUM
  16. DOCUSATE [Suspect]
     Active Substance: DOCUSATE
  17. NARCAN [Suspect]
     Active Substance: NALOXONE HYDROCHLORIDE
  18. SEROQUEL XR [Suspect]
     Active Substance: QUETIAPINE FUMARATE

REACTIONS (1)
  - Disease progression [None]
